FAERS Safety Report 19820398 (Version 1)
Quarter: 2021Q3

REPORT INFORMATION
  Report Type: Spontaneous
  Country: US (occurrence: US)
  Receive Date: 20210910
  Receipt Date: 20210910
  Transmission Date: 20211014
  Serious: Yes (Death, Hospitalization)
  Sender: FDA-Public Use
  Company Number: None

PATIENT
  Age: 93 Year
  Sex: Female
  Weight: 59.4 kg

DRUGS (10)
  1. TOPROL XL [Concomitant]
     Active Substance: METOPROLOL SUCCINATE
  2. KCL [Concomitant]
     Active Substance: POTASSIUM CHLORIDE
  3. PACEMAKER [Concomitant]
     Active Substance: DEVICE
  4. ELIQUIS [Concomitant]
     Active Substance: APIXABAN
  5. PROLIA [Suspect]
     Active Substance: DENOSUMAB
     Indication: OSTEOPOROSIS
     Dosage: ?          QUANTITY:1 INJECTION(S);OTHER FREQUENCY:EVERY 6 MONTHS;?
     Route: 058
     Dates: start: 20181204, end: 20200610
  6. HCTZ [Concomitant]
     Active Substance: HYDROCHLOROTHIAZIDE
  7. SYNTHROID [Concomitant]
     Active Substance: LEVOTHYROXINE SODIUM
  8. CALCIUM [Concomitant]
     Active Substance: CALCIUM
  9. CRESTOR [Concomitant]
     Active Substance: ROSUVASTATIN CALCIUM
  10. VITAMINS  C D [Concomitant]

REACTIONS (1)
  - Oesophageal carcinoma [None]

NARRATIVE: CASE EVENT DATE: 20181204
